FAERS Safety Report 13928405 (Version 1)
Quarter: 2017Q3

REPORT INFORMATION
  Report Type: Spontaneous
  Country: US (occurrence: US)
  Receive Date: 20170901
  Receipt Date: 20170901
  Transmission Date: 20171127
  Serious: No
  Sender: FDA-Public Use
  Company Number: US-BAYER-2017-161962

PATIENT
  Age: 87 Year
  Sex: Male
  Weight: 82 kg

DRUGS (1)
  1. MIRALAX [Suspect]
     Active Substance: POLYETHYLENE GLYCOL 3350
     Indication: GASTROINTESTINAL DISORDER
     Dosage: 1 DF, CAPFUL IN WATER DOSE
     Route: 048
     Dates: start: 201708

REACTIONS (3)
  - Pollakiuria [Not Recovered/Not Resolved]
  - Diarrhoea [Not Recovered/Not Resolved]
  - Drug effect increased [Unknown]

NARRATIVE: CASE EVENT DATE: 201708
